FAERS Safety Report 18391159 (Version 1)
Quarter: 2020Q4

REPORT INFORMATION
  Report Type: Report from Study
  Country: US (occurrence: US)
  Receive Date: 20201016
  Receipt Date: 20201016
  Transmission Date: 20210114
  Serious: No
  Sender: FDA-Public Use
  Company Number: NVSC2020US275900

PATIENT
  Age: 74 Year
  Sex: Female

DRUGS (3)
  1. ENTRESTO [Suspect]
     Active Substance: SACUBITRIL\VALSARTAN
     Indication: PRODUCT USED FOR UNKNOWN INDICATION
     Dosage: UNK UNK, BID
     Route: 048
     Dates: start: 202009
  2. CARVEDILOL. [Suspect]
     Active Substance: CARVEDILOL
     Dosage: UNK UNK, UNKNOWN (HALF A PILL)
     Route: 065
  3. CARVEDILOL. [Suspect]
     Active Substance: CARVEDILOL
     Indication: BLOOD PRESSURE ABNORMAL
     Dosage: UNK UNK, UNKNOWN
     Route: 065
     Dates: start: 2020

REACTIONS (4)
  - Fall [Recovering/Resolving]
  - Hypotension [Recovering/Resolving]
  - Dizziness [Unknown]
  - Weight decreased [Unknown]

NARRATIVE: CASE EVENT DATE: 2020
